FAERS Safety Report 24355732 (Version 2)
Quarter: 2024Q3

REPORT INFORMATION
  Report Type: Spontaneous
  Country: US (occurrence: US)
  Receive Date: 20240924
  Receipt Date: 20240925
  Transmission Date: 20241017
  Serious: No
  Sender: Haleon PLC
  Company Number: US-HALEON-2198124

PATIENT
  Sex: Female

DRUGS (1)
  1. ABREVA [Suspect]
     Active Substance: DOCOSANOL
     Indication: Herpes simplex
     Dosage: EXPDATE:20260131

REACTIONS (2)
  - Oral discomfort [Unknown]
  - Lip swelling [Unknown]
